FAERS Safety Report 22113949 (Version 3)
Quarter: 2023Q1

REPORT INFORMATION
  Report Type: Spontaneous
  Country: CN (occurrence: CN)
  Receive Date: 20230320
  Receipt Date: 20230328
  Transmission Date: 20230418
  Serious: Yes (Death, Life-Threatening, Hospitalization)
  Sender: FDA-Public Use
  Company Number: CN-HORIZON THERAPEUTICS-HZN-2023-002091

PATIENT

DRUGS (2)
  1. RAVICTI [Suspect]
     Active Substance: GLYCEROL PHENYLBUTYRATE
     Indication: Hyperammonaemia
     Dosage: 2 ML, TID
     Route: 048
     Dates: start: 20230223
  2. ARGININE [Concomitant]
     Active Substance: ARGININE
     Dosage: 850 MG, TID
     Route: 042
     Dates: start: 20230223

REACTIONS (9)
  - Influenza [Fatal]
  - Abnormal behaviour [Unknown]
  - Speech disorder [Unknown]
  - Malaise [Unknown]
  - Eye disorder [Unknown]
  - Listless [Unknown]
  - Ammonia increased [Not Recovered/Not Resolved]
  - Somnolence [Recovered/Resolved]
  - Vomiting [Unknown]

NARRATIVE: CASE EVENT DATE: 20230228
